FAERS Safety Report 9257460 (Version 2)
Quarter: 2013Q2

REPORT INFORMATION
  Report Type: Spontaneous
  Country: JP (occurrence: JP)
  Receive Date: 20130426
  Receipt Date: 20130528
  Transmission Date: 20140414
  Serious: Yes (Hospitalization)
  Sender: FDA-Public Use
  Company Number: JP-PFIZER INC-2013128881

PATIENT
  Age: 13 Year
  Sex: Female

DRUGS (4)
  1. ANCARON [Suspect]
     Dosage: 400 MG, DAILY
     Route: 048
     Dates: start: 20130405
  2. ANCARON [Suspect]
     Dosage: 200 MG, DAILY
     Route: 048
     Dates: start: 20130410
  3. ANCARON [Suspect]
     Dosage: 100 MG, 1X/DAY
     Route: 048
  4. BEPRICOR [Concomitant]
     Dosage: UNK

REACTIONS (1)
  - Asthma [Recovering/Resolving]
